FAERS Safety Report 8673941 (Version 2)
Quarter: 2013Q4

REPORT INFORMATION
  Report Type: Spontaneous
  Country: US (occurrence: US)
  Receive Date: 20120719
  Receipt Date: 20131101
  Transmission Date: 20140711
  Serious: No
  Sender: FDA-Public Use
  Company Number: US-009507513-1206USA03035

PATIENT
  Sex: Female

DRUGS (1)
  1. HYZAAR [Suspect]
     Indication: HYPERTENSION
     Dosage: 12.5-100
     Route: 048
     Dates: end: 201111

REACTIONS (2)
  - Adverse event [Unknown]
  - Malaise [Unknown]
